FAERS Safety Report 10277081 (Version 2)
Quarter: 2014Q3

REPORT INFORMATION
  Report Type: Spontaneous
  Country: JP (occurrence: JP)
  Receive Date: 20140703
  Receipt Date: 20140723
  Transmission Date: 20150326
  Serious: Yes (Other)
  Sender: FDA-Public Use
  Company Number: JP-GLAXOSMITHKLINE-B1007484A

PATIENT
  Age: 66 Year
  Sex: Female

DRUGS (8)
  1. RELVAR ELLIPTA [Suspect]
     Active Substance: FLUTICASONE FUROATE\VILANTEROL TRIFENATATE
     Indication: ASTHMA
     Dosage: 100MCG PER DAY
     Route: 055
     Dates: start: 20140610, end: 20140611
  2. RELVAR ELLIPTA [Suspect]
     Active Substance: FLUTICASONE FUROATE\VILANTEROL TRIFENATATE
     Indication: ASTHMA
     Dosage: 1IUAX PER DAY
     Route: 055
     Dates: start: 20140219
  3. PROMAC [Concomitant]
     Active Substance: NITROFURANTOIN
     Dosage: 75MG TWICE PER DAY
     Route: 048
     Dates: start: 20110502
  4. URSO [Concomitant]
     Active Substance: URSODIOL
     Dosage: 400MG TWICE PER DAY
     Route: 048
     Dates: start: 20110502
  5. RELVAR ELLIPTA [Suspect]
     Active Substance: FLUTICASONE FUROATE\VILANTEROL TRIFENATATE
     Indication: ASTHMA
     Dosage: 1IUAX PER DAY
     Route: 055
     Dates: start: 20140310
  6. HYDROCHLOROTHIAZIDE + TELMISARTAN [Concomitant]
     Dosage: 1IUAX PER DAY
     Route: 048
     Dates: start: 20130617
  7. LIVACT [Concomitant]
     Dosage: 4.15G TWICE PER DAY
     Route: 048
     Dates: start: 20110502
  8. NEO-MINOPHAGEN-C [Concomitant]
     Active Substance: AMMONIUM CATION\GLYCYRRHIZIN
     Route: 042

REACTIONS (3)
  - Urticaria [Recovering/Resolving]
  - Face oedema [Unknown]
  - Flushing [Recovering/Resolving]

NARRATIVE: CASE EVENT DATE: 20140610
